FAERS Safety Report 6691478-1 (Version None)
Quarter: 2010Q2

REPORT INFORMATION
  Report Type: 
  Country: None (occurrence: None)
  Receive Date: 20100419
  Receipt Date: 20100408
  Transmission Date: 20101027
  Serious: Yes (Life-Threatening)
  Sender: FDA-Public Use
  Company Number: 100001575

PATIENT
  Age: 62 Year
  Sex: Female

DRUGS (10)
  1. NEBIVOLOL (NEBIVOLOL HYDROCHLORIDE) [Suspect]
     Dosage: 5 MG (5 MG, 1 IN 1 D), ORAL
     Route: 048
     Dates: start: 20070101, end: 20091028
  2. ATHYMIL [Suspect]
     Dosage: 90 MG (90 MG, 1 IN 1 D), ORAL
     Route: 048
     Dates: start: 20060101, end: 20091029
  3. RAMIPRIL [Suspect]
     Dosage: 10 MG (10 MG, 1 IN 1 D), ORAL
     Route: 048
     Dates: start: 20060101, end: 20091027
  4. RAMIPRIL [Suspect]
     Dosage: (1.25 MG), ORAL
     Route: 048
     Dates: start: 20091201
  5. ESIDRIX [Suspect]
     Dosage: 25 MG (25 MG, 1 IN 1 D), ORAL
     Route: 048
     Dates: start: 20081201, end: 20091029
  6. TETRAZEPAM [Suspect]
     Dosage: 50 MG (50 MG, 1 IN 1 D), ORAL
     Route: 048
     Dates: start: 20090601, end: 20091027
  7. LYRICA [Suspect]
     Dosage: 60 MG (60 MG, 1 IN 1 D), ORAL
     Route: 048
     Dates: start: 20081001, end: 20091023
  8. STRUCTUM [Concomitant]
  9. CALTRATE [Concomitant]
  10. OXYCONTIN [Concomitant]

REACTIONS (9)
  - BONE MARROW FAILURE [None]
  - CARDIOMEGALY [None]
  - CHOLELITHIASIS [None]
  - CYST [None]
  - EPISTAXIS [None]
  - GASTROINTESTINAL DISORDER [None]
  - HAEMATOMA [None]
  - PANCYTOPENIA [None]
  - PORTAL HYPERTENSION [None]
